FAERS Safety Report 8551690-3 (Version None)
Quarter: 2012Q3

REPORT INFORMATION
  Report Type: 
  Country: None (occurrence: None)
  Receive Date: 20120730
  Receipt Date: 20120717
  Transmission Date: 20120928
  Serious: Yes (Death, Life-Threatening, Other)
  Sender: FDA-Public Use
  Company Number: JP-ROCHE-769976

PATIENT
  Age: 55 Year
  Sex: Male

DRUGS (9)
  1. VALCYTE [Suspect]
     Route: 048
     Dates: start: 20100425, end: 20100501
  2. FAMOTIDINE [Concomitant]
     Dosage: BEFORE INITIATION OF VALIXA
     Route: 048
  3. CELLCEPT [Suspect]
     Indication: TRANSPLANT REJECTION
     Dosage: BEFORE INITIATION OF VALIXA
     Route: 048
  4. CELLCEPT [Suspect]
  5. CELLCEPT [Suspect]
     Dates: start: 20100423, end: 20100505
  6. IMIPENEM [Concomitant]
     Dosage: DRUG REPORTED AS INDAST
     Route: 051
     Dates: start: 20100429, end: 20100501
  7. VALCYTE [Suspect]
     Indication: INFECTION IN AN IMMUNOCOMPROMISED HOST
     Route: 048
     Dates: start: 20100411, end: 20100417
  8. TACROLIMUS [Concomitant]
     Dosage: DRUG GRACEPTOR, BEFORE INITIATION OF VALIXA
     Route: 048
  9. LASIX [Concomitant]
     Dosage: BEFORE INITIATION OF VALIXA
     Route: 048

REACTIONS (2)
  - GRANULOCYTOPENIA [None]
  - ARRHYTHMIA [None]
